FAERS Safety Report 9781663 (Version 3)
Quarter: 2014Q2

REPORT INFORMATION
  Report Type: Spontaneous
  Country: US (occurrence: US)
  Receive Date: 20131224
  Receipt Date: 20140506
  Transmission Date: 20141212
  Serious: Yes (Death, Hospitalization)
  Sender: FDA-Public Use
  Company Number: US-EXELIXIS-CABO-13003652

PATIENT
  Age: 58 Year
  Sex: Male
  Weight: 76.8 kg

DRUGS (1)
  1. COMETRIQ [Suspect]
     Indication: RENAL CANCER
     Dosage: 60 MG, QD
     Route: 048
     Dates: start: 20131017, end: 20131110

REACTIONS (4)
  - Sepsis [Unknown]
  - Renal cell carcinoma [Fatal]
  - Performance status decreased [Unknown]
  - Off label use [Unknown]
